FAERS Safety Report 5271836-2 (Version None)
Quarter: 2007Q1

REPORT INFORMATION
  Report Type: 
  Country: None (occurrence: None)
  Receive Date: 20070321
  Receipt Date: 20070309
  Transmission Date: 20070707
  Serious: Yes (Other)
  Sender: FDA-Public Use
  Company Number: US-PFIZER INC-2007019272

PATIENT
  Sex: Female
  Weight: 74.8 kg

DRUGS (3)
  1. CHANTIX [Suspect]
     Indication: EX-SMOKER
     Route: 048
  2. COZAAR [Concomitant]
  3. ADVAIR DISKUS 100/50 [Concomitant]

REACTIONS (5)
  - DRY EYE [None]
  - EYE DISORDER [None]
  - EYE PAIN [None]
  - PHOTOSENSITIVITY REACTION [None]
  - VISION BLURRED [None]
